FAERS Safety Report 20198269 (Version 1)
Quarter: 2021Q4

REPORT INFORMATION
  Report Type: Spontaneous
  Country: CN (occurrence: CN)
  Receive Date: 20211217
  Receipt Date: 20211217
  Transmission Date: 20220303
  Serious: Yes (Other)
  Sender: FDA-Public Use
  Company Number: CN-BAXTER-2021BAX041107

PATIENT
  Age: 50 Year
  Sex: Female
  Weight: 61 kg

DRUGS (9)
  1. CYCLOPHOSPHAMIDE [Suspect]
     Active Substance: CYCLOPHOSPHAMIDE
     Indication: Hodgkin^s disease
     Dosage: 0.9% NS 20ML + CYCLOPHOSPHAMIDE FOR INJECTION 1G
     Route: 042
     Dates: start: 20211130, end: 20211130
  2. SODIUM CHLORIDE [Suspect]
     Active Substance: SODIUM CHLORIDE
     Indication: Medication dilution
     Dosage: 0.9% NS 20ML + CYCLOPHOSPHAMIDE FOR INJECTION 1G
     Route: 042
     Dates: start: 20211130, end: 20211130
  3. SODIUM CHLORIDE [Suspect]
     Active Substance: SODIUM CHLORIDE
     Dosage: 0.9% NS 100ML + SINTILIMAB INJECTION 0.2G
     Route: 041
     Dates: start: 20211130, end: 20211130
  4. SODIUM CHLORIDE [Suspect]
     Active Substance: SODIUM CHLORIDE
     Dosage: 0.9% NS 10ML + BLEOMYCIN A5 HYDROCHLORIDE FOR INJECTION 8 MG
     Route: 030
     Dates: start: 20211130, end: 20211130
  5. SODIUM CHLORIDE [Suspect]
     Active Substance: SODIUM CHLORIDE
     Dosage: 0.9% NS 10ML + VINCRISTINE SULFATE FOR INJECTION 1.8 MG
     Route: 042
     Dates: start: 20211130, end: 20211130
  6. DEXTROSE [Suspect]
     Active Substance: DEXTROSE
     Indication: Medication dilution
     Dosage: 5% GS 80ML + EPIRUBICIN HYDROCHLORIDE FOR INJECTION 80 MG
     Route: 041
     Dates: start: 20211130, end: 20211130
  7. BLEOMYCIN HYDROCHLORIDE [Suspect]
     Active Substance: BLEOMYCIN HYDROCHLORIDE
     Indication: Hodgkin^s disease
     Dosage: 0.9% NS 10ML + BLEOMYCIN A5 HYDROCHLORIDE FOR INJECTION 8 MG
     Route: 030
     Dates: start: 20211130, end: 20211130
  8. EPIRUBICIN HYDROCHLORIDE [Suspect]
     Active Substance: EPIRUBICIN HYDROCHLORIDE
     Indication: Hodgkin^s disease
     Dosage: 5% GS 80ML + EPIRUBICIN HYDROCHLORIDE FOR INJECTION 80 MG
     Route: 041
     Dates: start: 20211130, end: 20211130
  9. VINCRISTINE SULFATE [Suspect]
     Active Substance: VINCRISTINE SULFATE
     Indication: Hodgkin^s disease
     Dosage: 0.9% NS 10ML + VINCRISTINE SULFATE FOR INJECTION 1.8 MG
     Route: 042
     Dates: start: 20211130, end: 20211130

REACTIONS (1)
  - White blood cell count decreased [Recovering/Resolving]

NARRATIVE: CASE EVENT DATE: 20211203
